FAERS Safety Report 11049378 (Version 1)
Quarter: 2015Q2

REPORT INFORMATION
  Report Type: Spontaneous
  Country: US (occurrence: US)
  Receive Date: 20150420
  Receipt Date: 20150420
  Transmission Date: 20150821
  Serious: Yes (Other)
  Sender: FDA-Public Use
  Company Number: US-BAYER-2015-127934

PATIENT
  Age: 34 Year
  Sex: Female

DRUGS (1)
  1. MIRENA [Suspect]
     Active Substance: LEVONORGESTREL
     Indication: CONTRACEPTION
     Dosage: 20 MCG/24HR, CONT
     Route: 015
     Dates: start: 20150324, end: 20150324

REACTIONS (5)
  - Device difficult to use [None]
  - Device breakage [None]
  - Complication of device insertion [None]
  - Procedural haemorrhage [None]
  - Post procedural discomfort [None]

NARRATIVE: CASE EVENT DATE: 20150324
